FAERS Safety Report 13839849 (Version 2)
Quarter: 2017Q3

REPORT INFORMATION
  Report Type: Spontaneous
  Country: TW (occurrence: TW)
  Receive Date: 20170807
  Receipt Date: 20170825
  Transmission Date: 20171127
  Serious: Yes (Other)
  Sender: FDA-Public Use
  Company Number: TW-BAYER-2017-142867

PATIENT
  Age: 70 Year
  Sex: Female

DRUGS (2)
  1. CIPROXIN [Suspect]
     Active Substance: CIPROFLOXACIN
     Dosage: UNK
  2. CEFTRIAXONE. [Suspect]
     Active Substance: CEFTRIAXONE
     Dosage: UNK

REACTIONS (4)
  - Russell^s viper venom time abnormal [None]
  - Hypergammaglobulinaemia benign monoclonal [None]
  - Antiphospholipid syndrome [None]
  - Fibrin D dimer increased [None]
